FAERS Safety Report 12661554 (Version 3)
Quarter: 2016Q3

REPORT INFORMATION
  Report Type: Report from Study
  Country: US (occurrence: US)
  Receive Date: 20160817
  Receipt Date: 20160902
  Transmission Date: 20161109
  Serious: Yes (Hospitalization, Other)
  Sender: FDA-Public Use
  Company Number: US-GILEAD-2016-0228955

PATIENT
  Age: 76 Year
  Sex: Female
  Weight: 77.55 kg

DRUGS (1)
  1. AMBRISENTAN [Suspect]
     Active Substance: AMBRISENTAN
     Indication: COR PULMONALE CHRONIC
     Dosage: 5 MG, QD
     Route: 065

REACTIONS (7)
  - Off label use [Not Recovered/Not Resolved]
  - Abdominal pain [Recovered/Resolved]
  - Cardiac pacemaker insertion [Unknown]
  - Respiratory disorder [Recovered/Resolved]
  - Coeliac artery stenosis [Recovered/Resolved]
  - Oxygen saturation decreased [Recovered/Resolved]
  - Neuropathy peripheral [Unknown]

NARRATIVE: CASE EVENT DATE: 20160802
